FAERS Safety Report 10206333 (Version 2)
Quarter: 2014Q2

REPORT INFORMATION
  Report Type: Report from Study
  Country: VE (occurrence: VE)
  Receive Date: 20140530
  Receipt Date: 20140530
  Transmission Date: 20141212
  Serious: No
  Sender: FDA-Public Use
  Company Number: PHHY2014VE060023

PATIENT
  Age: 58 Year
  Sex: Female

DRUGS (2)
  1. TASIGNA [Suspect]
     Indication: CHRONIC MYELOID LEUKAEMIA
     Dosage: 400 MG, DAILY
     Route: 048
     Dates: start: 201212
  2. XOLAIR [Suspect]
     Dosage: UNK UKN, UNK
     Dates: start: 201212

REACTIONS (1)
  - Influenza [Recovering/Resolving]
